FAERS Safety Report 9464660 (Version 2)
Quarter: 2014Q1

REPORT INFORMATION
  Report Type: Spontaneous
  Country: US (occurrence: US)
  Receive Date: 20130819
  Receipt Date: 20140117
  Transmission Date: 20141002
  Serious: Yes (Death, Hospitalization)
  Sender: FDA-Public Use
  Company Number: US-B.I. PHARMACEUTICALS,INC./RIDGEFIELD-2013-BI-25319BP

PATIENT
  Age: 72 Year
  Sex: Female
  Weight: 105.69 kg

DRUGS (8)
  1. PRADAXA [Suspect]
     Indication: ATRIAL FIBRILLATION
     Dosage: 300 MG
     Dates: start: 20110526, end: 20110824
  2. ALLOPURINOL [Concomitant]
     Dosage: 600 MG
  3. ALTACE [Concomitant]
     Dosage: 5 MG
  4. DIGOXIN [Concomitant]
     Dosage: 200 MCG
  5. MULTAQ [Concomitant]
     Dosage: 800 MG
  6. POTASSIUM CHLORIDE [Concomitant]
     Dosage: 30 MEQ
  7. FUROSEMIDE [Concomitant]
     Dosage: 100 MG
  8. XOPENEX [Concomitant]

REACTIONS (3)
  - Gastrointestinal haemorrhage [Fatal]
  - Intestinal perforation [Fatal]
  - Anaemia [Unknown]
